FAERS Safety Report 9341857 (Version 1)
Quarter: 2013Q2

REPORT INFORMATION
  Report Type: Spontaneous
  Country: US (occurrence: None)
  Receive Date: 20130606
  Receipt Date: 20130606
  Transmission Date: 20140414
  Serious: Yes (Hospitalization)
  Sender: FDA-Public Use
  Company Number: JPI-P-032553

PATIENT
  Age: 44 Year
  Sex: Female
  Weight: 69.85 kg

DRUGS (1)
  1. XYREM (500 MILLIGRAM/ MILLILITERS, SOLUTION) (SODIUM OXYBATE) [Suspect]
     Indication: INSOMNIA
     Dosage: (UNKNOWN, 2 IN 1 D), ORAL
     Route: 048
     Dates: start: 20090515, end: 20130518

REACTIONS (2)
  - Fall [None]
  - Ankle fracture [None]
